FAERS Safety Report 19587480 (Version 1)
Quarter: 2021Q3

REPORT INFORMATION
  Report Type: Spontaneous
  Country: US (occurrence: US)
  Receive Date: 20210720
  Receipt Date: 20210720
  Transmission Date: 20211014
  Serious: Yes (Other)
  Sender: FDA-Public Use
  Company Number: None

PATIENT
  Sex: Female

DRUGS (2)
  1. WARFARIN 5MG [Suspect]
     Active Substance: WARFARIN
  2. WARFARIN 7.5MG [Suspect]
     Active Substance: WARFARIN

REACTIONS (1)
  - Therapy non-responder [None]
